FAERS Safety Report 4399369-6 (Version None)
Quarter: 2004Q3

REPORT INFORMATION
  Report Type: 
  Country: None (occurrence: None)
  Receive Date: 20040712
  Receipt Date: 20040628
  Transmission Date: 20050211
  Serious: Yes (Disabling)
  Sender: FDA-Public Use
  Company Number: A01200403010

PATIENT
  Age: 61 Year
  Sex: Female

DRUGS (5)
  1. CLOPIDOGREL TABLET 75 MG [Suspect]
     Indication: MYOCARDIAL ISCHAEMIA
     Dosage: 75 MG OD ORAL
     Route: 048
     Dates: start: 20040423, end: 20040526
  2. ASPIRIN TAB [Concomitant]
  3. ATORVASTATIN CALCIUM [Concomitant]
  4. LANSOPRAZOLE [Concomitant]
  5. SECURON (VERAPAMIL HYDROCHLORIDE) [Concomitant]

REACTIONS (2)
  - ARTHRALGIA [None]
  - TENOSYNOVITIS [None]
